FAERS Safety Report 24239081 (Version 2)
Quarter: 2024Q4

REPORT INFORMATION
  Report Type: Spontaneous
  Country: US (occurrence: US)
  Receive Date: 20240822
  Receipt Date: 20241125
  Transmission Date: 20250114
  Serious: No
  Sender: AVADEL CNS PHARMACEUTICALS, LLC
  Company Number: US-AVADEL CNS PHARMACEUTICALS, LLC-2024AVA01221

PATIENT
  Sex: Female

DRUGS (2)
  1. LUMRYZ [Suspect]
     Active Substance: SODIUM OXYBATE
     Dosage: 7.5 G, NIGHTLY
     Dates: start: 20240712, end: 202408
  2. UNSPECIFIED DAYTIME MEDICATION [Concomitant]

REACTIONS (7)
  - Middle insomnia [Unknown]
  - Initial insomnia [Not Recovered/Not Resolved]
  - Fatigue [Unknown]
  - Abnormal dreams [Unknown]
  - Somnolence [Unknown]
  - Nocturia [Unknown]
  - Anxiety [Unknown]

NARRATIVE: CASE EVENT DATE: 20240101
